FAERS Safety Report 18371451 (Version 1)
Quarter: 2020Q4

REPORT INFORMATION
  Report Type: Spontaneous
  Country: US (occurrence: US)
  Receive Date: 20201012
  Receipt Date: 20201012
  Transmission Date: 20210114
  Serious: No
  Sender: FDA-Public Use
  Company Number: US-PFIZER INC-2020391392

PATIENT
  Sex: Female
  Weight: 70.31 kg

DRUGS (1)
  1. LEVOXYL [Suspect]
     Active Substance: LEVOTHYROXINE SODIUM
     Indication: HYPOTHYROIDISM
     Dosage: 125 MG, 1X/DAY
     Route: 048
     Dates: start: 20181107

REACTIONS (6)
  - Headache [Unknown]
  - Malaise [Unknown]
  - Intentional product misuse [Unknown]
  - Sinus headache [Unknown]
  - Sinus pain [Unknown]
  - Product complaint [Unknown]
